FAERS Safety Report 6120791-1 (Version None)
Quarter: 2009Q1

REPORT INFORMATION
  Report Type: 
  Country: None (occurrence: None)
  Receive Date: 20090317
  Receipt Date: 20090310
  Transmission Date: 20090719
  Serious: Yes (Death, Other)
  Sender: FDA-Public Use
  Company Number: AU-ELI_LILLY_AND_COMPANY-AU200903003139

PATIENT
  Age: 64 Year
  Sex: Male

DRUGS (5)
  1. ALIMTA [Suspect]
     Indication: NON-SMALL CELL LUNG CANCER
     Dosage: 500 MG/M2, ON DAY 1 EVERY 21 DAYS
     Route: 042
  2. VANDETANIB [Concomitant]
     Indication: NON-SMALL CELL LUNG CANCER
     Dosage: 300 MG, DAILY (1/D)
     Route: 048
  3. VITAMIN B-12 [Concomitant]
     Indication: PROPHYLAXIS
     Dosage: 1000 UG, UNK
     Route: 030
  4. FOLIC ACID [Concomitant]
     Indication: PROPHYLAXIS
     Dosage: 400 UG, DAILY (1/D)
     Route: 048
  5. DEXAMETHASONE TAB [Concomitant]
     Dosage: 4 MG, 2/D

REACTIONS (3)
  - CARDIAC ARREST [None]
  - CARDIOMEGALY [None]
  - RASH MACULAR [None]
